FAERS Safety Report 10055484 (Version 3)
Quarter: 2014Q2

REPORT INFORMATION
  Report Type: Spontaneous
  Country: US (occurrence: US)
  Receive Date: 20140403
  Receipt Date: 20140415
  Transmission Date: 20141212
  Serious: No
  Sender: FDA-Public Use
  Company Number: US-009507513-1403USA009882

PATIENT
  Age: 48 Year
  Sex: Male

DRUGS (11)
  1. TICE BCG LIVE [Suspect]
     Indication: BLADDER CANCER
     Dosage: UNK
  2. TICE BCG LIVE [Suspect]
     Dosage: UNK
     Dates: start: 20130206
  3. TICE BCG LIVE [Suspect]
     Dosage: UNK
     Dates: start: 20130213
  4. TICE BCG LIVE [Suspect]
     Dosage: UNK
     Dates: start: 20130220
  5. TICE BCG LIVE [Suspect]
     Dosage: UNK
     Dates: start: 20130227
  6. TICE BCG LIVE [Suspect]
     Dosage: UNK
     Dates: start: 20130306
  7. TICE BCG LIVE [Suspect]
     Dosage: UNK
     Dates: start: 20131113
  8. TICE BCG LIVE [Suspect]
     Dosage: UNK
     Dates: start: 20131120
  9. TICE BCG LIVE [Suspect]
     Dosage: UNK
     Dates: start: 20131127
  10. TICE BCG LIVE [Suspect]
     Dosage: UNK
     Dates: start: 20131204
  11. TICE BCG LIVE [Suspect]
     Dosage: UNK
     Dates: start: 20131211

REACTIONS (8)
  - Haematuria [Unknown]
  - Influenza like illness [Recovering/Resolving]
  - Dysuria [Recovering/Resolving]
  - Pollakiuria [Recovering/Resolving]
  - Pyrexia [Unknown]
  - Chills [Unknown]
  - Malaise [Unknown]
  - Haematuria [Unknown]
